FAERS Safety Report 4301332-8 (Version None)
Quarter: 2004Q1

REPORT INFORMATION
  Report Type: 
  Country: None (occurrence: None)
  Receive Date: 20040223
  Receipt Date: 20030220
  Transmission Date: 20041129
  Serious: No
  Sender: FDA-Public Use
  Company Number: US-GLAXOSMITHKLINE-A0397537A

PATIENT
  Sex: Female

DRUGS (3)
  1. NAVELBINE [Suspect]
     Route: 042
  2. DECADRON [Concomitant]
  3. KYTRIL [Concomitant]
     Route: 042

REACTIONS (1)
  - VOMITING [None]
